FAERS Safety Report 4450343-0 (Version None)
Quarter: 2004Q3

REPORT INFORMATION
  Report Type: 
  Country: None (occurrence: None)
  Receive Date: 20040915
  Receipt Date: 20040825
  Transmission Date: 20050211
  Serious: Yes (Hospitalization)
  Sender: FDA-Public Use
  Company Number: A01200403580

PATIENT
  Age: 80 Year
  Sex: Male

DRUGS (3)
  1. (ALFUZOSIN) - TABLET PR - 10 MG [Suspect]
     Indication: BENIGN PROSTATIC HYPERPLASIA
     Dosage: 10 MG OD ORAL- TIME TO ONSET : 3 WEEKS
     Route: 048
  2. DIGOXIN [Concomitant]
  3. ASPIRIN [Concomitant]

REACTIONS (12)
  - ANTI-HBC IGG ANTIBODY POSITIVE [None]
  - ANTI-HBE ANTIBODY POSITIVE [None]
  - CREATININE RENAL CLEARANCE DECREASED [None]
  - HEPATITIS A ANTIBODY POSITIVE [None]
  - HEPATITIS ACUTE [None]
  - HEPATITIS B VIRUS [None]
  - HEPATOTOXICITY [None]
  - LIVER DISORDER [None]
  - PLATELET COUNT DECREASED [None]
  - PROTHROMBIN TIME PROLONGED [None]
  - SERUM FERRITIN INCREASED [None]
  - ULTRASOUND LIVER ABNORMAL [None]
